FAERS Safety Report 8494987-8 (Version None)
Quarter: 2012Q3

REPORT INFORMATION
  Report Type: 
  Country: None (occurrence: None)
  Receive Date: 20120702
  Receipt Date: 20120702
  Transmission Date: 20120928
  Serious: Yes (Life-Threatening, Other)
  Sender: FDA-Public Use
  Company Number: None

PATIENT
  Age: 14 Year
  Sex: Male
  Weight: 54.4316 kg

DRUGS (1)
  1. LEVETIRACETAM [Suspect]
     Indication: CONVULSION
     Dosage: 8 500MG PILLS DAILY PO
     Route: 048
     Dates: start: 20120504, end: 20120630

REACTIONS (3)
  - CONVULSION [None]
  - SKIN DISCOLOURATION [None]
  - APNOEA [None]
